FAERS Safety Report 9921758 (Version 1)
Quarter: 2014Q1

REPORT INFORMATION
  Report Type: Spontaneous
  Country: GB (occurrence: GB)
  Receive Date: 20140225
  Receipt Date: 20140225
  Transmission Date: 20141002
  Serious: Yes (Hospitalization)
  Sender: FDA-Public Use
  Company Number: GB-SA-2014SA023280

PATIENT
  Age: 48 Year
  Sex: Male

DRUGS (3)
  1. DESMOPRESSIN ACETATE [Suspect]
     Indication: ENURESIS
     Route: 065
  2. BENDROFLUMETHIAZIDE [Suspect]
     Indication: HYPERTENSION
     Route: 065
  3. POTASSIUM [Concomitant]
     Indication: BLOOD POTASSIUM DECREASED

REACTIONS (8)
  - Hyponatraemia [Recovered/Resolved]
  - Osmotic demyelination syndrome [Recovered/Resolved with Sequelae]
  - Delirium [Recovered/Resolved with Sequelae]
  - Dysarthria [Recovered/Resolved with Sequelae]
  - Quadriparesis [Recovered/Resolved with Sequelae]
  - Cerebral infarction [Unknown]
  - Coordination abnormal [Unknown]
  - Memory impairment [Unknown]
